FAERS Safety Report 9426070 (Version 1)
Quarter: 2013Q3

REPORT INFORMATION
  Report Type: Spontaneous
  Country: CA (occurrence: CA)
  Receive Date: 20130730
  Receipt Date: 20130730
  Transmission Date: 20140515
  Serious: Yes (Hospitalization)
  Sender: FDA-Public Use
  Company Number: CA-ROCHE-1253411

PATIENT
  Age: 50 Year
  Sex: Male
  Weight: 29.96 kg

DRUGS (2)
  1. NAPROXEN [Suspect]
     Indication: PRODUCT USED FOR UNKNOWN INDICATION
     Dosage: FREQUENCY: AS REQUIRED
     Route: 048
  2. IBUPROFEN [Suspect]
     Indication: PRODUCT USED FOR UNKNOWN INDICATION
     Dosage: FREQUENCY: AS REQUIRED
     Route: 048

REACTIONS (10)
  - Alcohol abuse [Unknown]
  - Alcoholic hangover [Unknown]
  - Asthenia [Unknown]
  - Dizziness [Unknown]
  - Duodenal ulcer [Unknown]
  - Faeces discoloured [Unknown]
  - Haemoglobin decreased [Unknown]
  - Haemoglobin increased [Unknown]
  - Helicobacter test [Unknown]
  - Palpitations [Unknown]
